FAERS Safety Report 17076918 (Version 1)
Quarter: 2019Q4

REPORT INFORMATION
  Report Type: Spontaneous
  Country: NL (occurrence: NL)
  Receive Date: 20191126
  Receipt Date: 20191126
  Transmission Date: 20200122
  Serious: Yes (Other)
  Sender: FDA-Public Use
  Company Number: NL-MYLANLABS-2019M1114446

PATIENT
  Age: 43 Year
  Sex: Male
  Weight: 100 kg

DRUGS (1)
  1. VENLAFAXINE [Suspect]
     Active Substance: VENLAFAXINE HYDROCHLORIDE
     Indication: DEPRESSION
     Dosage: 1X PER DAG 1 STUK
     Route: 048
     Dates: start: 20190601

REACTIONS (3)
  - Hot flush [Unknown]
  - Erectile dysfunction [Not Recovered/Not Resolved]
  - Mania [Unknown]

NARRATIVE: CASE EVENT DATE: 20190602
